FAERS Safety Report 11296373 (Version 1)
Quarter: 2015Q3

REPORT INFORMATION
  Report Type: Spontaneous
  Country: US (occurrence: US)
  Receive Date: 20150722
  Receipt Date: 20150722
  Transmission Date: 20151125
  Serious: No
  Sender: FDA-Public Use
  Company Number: US-ELI_LILLY_AND_COMPANY-US201008004045

PATIENT
  Sex: Female

DRUGS (6)
  1. CALCIUM [Concomitant]
     Active Substance: CALCIUM
  2. PROMETRIUM [Concomitant]
     Active Substance: PROGESTERONE
     Dosage: 100 MG, UNK
  3. ORAL CONTRACEPTIVE NOS [Concomitant]
     Active Substance: UNSPECIFIED INGREDIENT
  4. FEMRING [Concomitant]
     Active Substance: ESTRADIOL ACETATE
     Dosage: 0.05 MG, UNK
  5. TESTIM [Concomitant]
     Active Substance: TESTOSTERONE
     Dosage: 5 MG, UNK
  6. EVISTA [Suspect]
     Active Substance: RALOXIFENE HYDROCHLORIDE
     Indication: OSTEOPENIA
     Dosage: 60 MG, DAILY (1/D)

REACTIONS (3)
  - Bone disorder [Unknown]
  - Osteoporosis [Unknown]
  - Off label use [Unknown]
